FAERS Safety Report 5175213-4 (Version None)
Quarter: 2006Q4

REPORT INFORMATION
  Report Type: 
  Country: None (occurrence: None)
  Receive Date: 20061206
  Receipt Date: 20061106
  Transmission Date: 20070319
  Serious: Yes (Death, Hospitalization)
  Sender: FDA-Public Use
  Company Number: 8020544

PATIENT
  Age: 86 Year
  Sex: Male

DRUGS (4)
  1. LEVETIRACETAM [Suspect]
     Indication: CONVULSION
     Dosage: 500 MG THREE IV
     Route: 042
  2. LEVETIRACETAM [Suspect]
     Indication: CONVULSION
     Dosage: 5000 MG 3/D PO
     Route: 048
  3. LEVETIRACETAM [Suspect]
     Indication: CONVULSION
     Dosage: 1000 MG 2/D PO
     Route: 048
  4. DIAZEPAM [Suspect]
     Indication: CONVULSION
     Dosage: 20 MG ONCE

REACTIONS (3)
  - DRUG INEFFECTIVE [None]
  - PNEUMONIA [None]
  - RESPIRATORY DISTRESS [None]
